FAERS Safety Report 9877170 (Version 3)
Quarter: 2014Q1

REPORT INFORMATION
  Report Type: Spontaneous
  Country: JP (occurrence: JP)
  Receive Date: 20140206
  Receipt Date: 20140225
  Transmission Date: 20141002
  Serious: Yes (Other)
  Sender: FDA-Public Use
  Company Number: JP-JNJFOC-20140119079

PATIENT
  Age: 78 Year
  Sex: Male

DRUGS (6)
  1. DUROTEP MT [Suspect]
     Indication: CANCER PAIN
     Route: 062
  2. DUROTEP MT [Suspect]
     Indication: CANCER PAIN
     Route: 062
  3. DUROTEP MT [Suspect]
     Indication: CANCER PAIN
     Route: 062
     Dates: start: 201401
  4. TRAMCET [Suspect]
     Indication: PAIN
     Route: 048
  5. CELECOX [Concomitant]
     Route: 048
  6. BIOFERMIN R [Concomitant]
     Route: 048

REACTIONS (2)
  - Delirium [Recovered/Resolved]
  - Pain [Recovered/Resolved]
